FAERS Safety Report 7357022-0 (Version None)
Quarter: 2011Q1

REPORT INFORMATION
  Report Type: 
  Country: None (occurrence: None)
  Receive Date: 20110307
  Receipt Date: 20100426
  Transmission Date: 20110831
  Serious: No
  Sender: FDA-Public Use
  Company Number: AEUSA201000136

PATIENT
  Age: 64 Year
  Sex: Male

DRUGS (2)
  1. PROLASTIN [Concomitant]
  2. PROLASTIN-C [Suspect]
     Indication: ALPHA-1 ANTI-TRYPSIN DEFICIENCY
     Dosage: 11140 MG, QOW, IV
     Route: 042
     Dates: start: 20100422

REACTIONS (2)
  - PRODUCT QUALITY ISSUE [None]
  - INFLUENZA LIKE ILLNESS [None]
